FAERS Safety Report 5397269-6 (Version None)
Quarter: 2007Q3

REPORT INFORMATION
  Report Type: 
  Country: None (occurrence: None)
  Receive Date: 20070725
  Receipt Date: 20070718
  Transmission Date: 20080115
  Serious: No
  Sender: FDA-Public Use
  Company Number: JP-PFIZER INC-2007057237

PATIENT
  Sex: Female

DRUGS (5)
  1. ZYRTEC [Suspect]
     Indication: RHINITIS ALLERGIC
     Dosage: DAILY DOSE:10MG
     Route: 048
     Dates: start: 20061030, end: 20070702
  2. ZOLMITRIPTAN [Concomitant]
     Indication: MIGRAINE
     Dosage: DAILY DOSE:25MG
     Route: 048
  3. ZOLPIDEM TARTRATE [Concomitant]
     Indication: INSOMNIA
     Dosage: DAILY DOSE:10MG
     Route: 048
     Dates: start: 20070612, end: 20070626
  4. DOMIPHEN BROMIDE [Concomitant]
     Indication: TONSILLITIS
     Dosage: DAILY DOSE:2MG
     Route: 048
     Dates: start: 20070612, end: 20070619
  5. ALL OTHER THERAPEUTIC PRODUCTS [Concomitant]
     Indication: PROPHYLAXIS
     Dosage: DAILY DOSE:3.9GRAM
     Route: 048
     Dates: start: 20070101, end: 20070626

REACTIONS (1)
  - ELECTROCARDIOGRAM QT PROLONGED [None]
